FAERS Safety Report 20327584 (Version 2)
Quarter: 2022Q2

REPORT INFORMATION
  Report Type: Spontaneous
  Country: CA (occurrence: CA)
  Receive Date: 20220112
  Receipt Date: 20220422
  Transmission Date: 20220721
  Serious: Yes (Other)
  Sender: FDA-Public Use
  Company Number: CA-SAMSUNG BIOEPIS-SB-2022-00236

PATIENT
  Age: 20 Year
  Sex: Male

DRUGS (4)
  1. INFLIXIMAB [Suspect]
     Active Substance: INFLIXIMAB
     Indication: Crohn^s disease
     Route: 042
  2. ENTOCORT [Concomitant]
     Active Substance: BUDESONIDE
     Indication: Product used for unknown indication
     Dosage: SUSTAINED RELEASE
     Route: 048
  3. ENTOCORT [Concomitant]
     Active Substance: BUDESONIDE
     Route: 048
  4. MESALAMINE [Concomitant]
     Active Substance: MESALAMINE
     Indication: Product used for unknown indication
     Route: 065

REACTIONS (6)
  - C-reactive protein increased [Recovered/Resolved]
  - Condition aggravated [Recovered/Resolved]
  - Pharyngitis streptococcal [Recovered/Resolved]
  - Weight increased [Recovered/Resolved]
  - Mastectomy [Recovered/Resolved]
  - Off label use [Recovered/Resolved]
